FAERS Safety Report 9111292 (Version 1)
Quarter: 2013Q1

REPORT INFORMATION
  Report Type: Spontaneous
  Country: US (occurrence: US)
  Receive Date: 20130219
  Receipt Date: 20130219
  Transmission Date: 20140127
  Serious: No
  Sender: FDA-Public Use
  Company Number: US-BRISTOL-MYERS SQUIBB COMPANY-16607459

PATIENT
  Sex: Female

DRUGS (1)
  1. ORENCIA [Suspect]
     Route: 042
     Dates: end: 20120507

REACTIONS (4)
  - Local swelling [Unknown]
  - Gait disturbance [Unknown]
  - Joint swelling [Unknown]
  - Swelling face [Unknown]
